FAERS Safety Report 10229221 (Version 2)
Quarter: 2014Q2

REPORT INFORMATION
  Report Type: Report from Study
  Country: US (occurrence: US)
  Receive Date: 20140611
  Receipt Date: 20140611
  Transmission Date: 20141212
  Serious: Yes (Hospitalization)
  Sender: FDA-Public Use
  Company Number: US-ROCHE-1363063

PATIENT
  Sex: Female

DRUGS (17)
  1. LUCENTIS [Suspect]
     Indication: DIABETIC RETINAL OEDEMA
     Dosage: OD
     Route: 050
     Dates: start: 20130415
  2. LUCENTIS [Suspect]
     Dosage: OD
     Route: 050
     Dates: start: 20130618
  3. LUCENTIS [Suspect]
     Dosage: OD
     Route: 050
     Dates: start: 20130819
  4. LUCENTIS [Suspect]
     Dosage: OD
     Route: 050
     Dates: start: 20140117
  5. LUCENTIS [Suspect]
     Dosage: OD
     Route: 050
     Dates: start: 20140321
  6. AVASTIN [Suspect]
     Indication: DIABETIC RETINAL OEDEMA
     Dosage: OD
     Route: 050
     Dates: start: 20120831
  7. AVASTIN [Suspect]
     Dosage: OD
     Route: 050
     Dates: start: 20120928
  8. AVASTIN [Suspect]
     Dosage: OD
     Route: 050
     Dates: start: 20121026
  9. AVASTIN [Suspect]
     Dosage: OD
     Route: 050
     Dates: start: 20130121
  10. AMLODIPINE [Concomitant]
     Route: 065
  11. ASPIRIN [Concomitant]
     Route: 065
  12. LISINOPRIL [Concomitant]
     Route: 065
  13. HYDROCHLOROTHIAZIDE [Concomitant]
     Route: 065
  14. METAMUCIL [Concomitant]
     Dosage: POWDER
     Route: 048
  15. METOCLOPRAMIDE [Concomitant]
     Route: 065
  16. TYLENOL ARTHRITIS [Concomitant]
     Route: 065
  17. SIMVASTATIN [Concomitant]
     Route: 065

REACTIONS (4)
  - Pneumonia [Unknown]
  - Retinal vascular disorder [Unknown]
  - Retinal haemorrhage [Unknown]
  - Macular ischaemia [Unknown]
